FAERS Safety Report 4714896-7 (Version None)
Quarter: 2005Q3

REPORT INFORMATION
  Report Type: 
  Country: None (occurrence: None)
  Receive Date: 20050715
  Receipt Date: 20050711
  Transmission Date: 20060218
  Serious: Yes (Other)
  Sender: FDA-Public Use
  Company Number: HQWYE168012JUL05

PATIENT
  Age: 24 Year
  Sex: Female
  Weight: 65.5 kg

DRUGS (6)
  1. ENBREL [Suspect]
     Indication: RHEUMATOID ARTHRITIS
     Route: 058
     Dates: start: 20050224, end: 20050401
  2. ENBREL [Suspect]
     Route: 058
     Dates: start: 20050401, end: 20050516
  3. METHOTREXATE [Concomitant]
     Dates: start: 20000101
  4. DICLOFENAC SODIUM [Concomitant]
     Indication: RHEUMATOID ARTHRITIS
     Dates: start: 20000101
  5. ACETAMINOPHEN [Concomitant]
     Indication: RHEUMATOID ARTHRITIS
     Dosage: 1.5-3 GR/DAY
     Dates: start: 20000101
  6. FOLIC ACID [Concomitant]
     Indication: PROPHYLAXIS
     Dates: start: 20000101

REACTIONS (4)
  - ALANINE AMINOTRANSFERASE INCREASED [None]
  - ASPARTATE AMINOTRANSFERASE INCREASED [None]
  - DIFFICULTY IN WALKING [None]
  - RETINOPATHY [None]
